FAERS Safety Report 9850928 (Version 1)
Quarter: 2014Q1

REPORT INFORMATION
  Report Type: Spontaneous
  Country: US (occurrence: None)
  Receive Date: 20140124
  Receipt Date: 20140124
  Transmission Date: 20141002
  Serious: Yes (Hospitalization, Other)
  Sender: FDA-Public Use
  Company Number: AXC-2014-000036

PATIENT
  Age: 75 Year
  Sex: Male

DRUGS (1)
  1. URSODEOXYCHOLIC ACID (URSODEOXYCHOLIC ACID) UNKNOWN) [Suspect]
     Indication: PRODUCT USED FOR UNKNOWN INDICATION
     Route: 048

REACTIONS (23)
  - Hepatitis virus-associated nephropathy [None]
  - Hepatitis B surface antigen positive [None]
  - Renal failure [None]
  - Oedema peripheral [None]
  - Renal hypertension [None]
  - Fatigue [None]
  - Inflammation [None]
  - Glomerulonephritis rapidly progressive [None]
  - Hypoalbuminaemia [None]
  - Cough [None]
  - Influenza like illness [None]
  - Pyrexia [None]
  - Blood creatinine increased [None]
  - Proteinuria [None]
  - Haematuria [None]
  - Malnutrition [None]
  - Weight decreased [None]
  - Pleural effusion [None]
  - Hypophagia [None]
  - Nephrogenic anaemia [None]
  - Cardiomegaly [None]
  - Urinary sediment present [None]
  - Normochromic normocytic anaemia [None]
